FAERS Safety Report 11793070 (Version 1)
Quarter: 2015Q4

REPORT INFORMATION
  Report Type: Spontaneous
  Country: DK (occurrence: DK)
  Receive Date: 20151202
  Receipt Date: 20151202
  Transmission Date: 20160305
  Serious: Yes (Life-Threatening, Hospitalization)
  Sender: FDA-Public Use
  Company Number: DK-ACTAVIS-2015-25430

PATIENT
  Age: 80 Year
  Sex: Male

DRUGS (3)
  1. PANTOLOC                           /01263204/ [Suspect]
     Active Substance: PANTOPRAZOLE SODIUM
     Indication: DYSPEPSIA
     Dosage: UNK
     Route: 048
     Dates: start: 201508, end: 20150905
  2. PINEX                              /00020001/ [Concomitant]
     Active Substance: ACETAMINOPHEN
     Indication: PAIN
     Dosage: UNK UNK, PRN (DOSE: IF NECESSARY)
     Route: 065
  3. OXYCODONHYDROCHLORID ACTAVIS [Suspect]
     Active Substance: OXYCODONE HYDROCHLORIDE
     Indication: PAIN
     Dosage: 5 MG, UNK (1 CAPSULE TYPICALLY 1-2 TIMES A DAY. STRENGTH: 5 MG)
     Route: 048
     Dates: start: 20150810, end: 20150905

REACTIONS (6)
  - Speech disorder [Recovered/Resolved]
  - Angioedema [Recovered/Resolved]
  - Dysphagia [Recovered/Resolved]
  - Mouth swelling [Recovered/Resolved]
  - Dyspnoea [Recovered/Resolved]
  - Hypersensitivity [Recovered/Resolved]

NARRATIVE: CASE EVENT DATE: 20150905
